FAERS Safety Report 5218480-0 (Version None)
Quarter: 2007Q1

REPORT INFORMATION
  Report Type: 
  Country: None (occurrence: None)
  Receive Date: 20070122
  Receipt Date: 20070112
  Transmission Date: 20070707
  Serious: Yes (Hospitalization)
  Sender: FDA-Public Use
  Company Number: NUBN20070001

PATIENT
  Age: 1 Day
  Sex: Male
  Weight: 3 kg

DRUGS (4)
  1. NUBAIN [Suspect]
     Indication: PAIN
     Dosage: 0.6 MG ONCE IV
     Route: 054
     Dates: start: 20060720, end: 20060720
  2. NUBAIN [Suspect]
     Indication: PAIN
     Dosage: 0.6 MG ONCE PR
     Dates: start: 20060720, end: 20060720
  3. MORPHINE HCL ELIXIR [Suspect]
     Indication: PAIN
     Dosage: 2.2 TO 1.1 ML/HR IV; PO
     Route: 042
     Dates: start: 20060720, end: 20060721
  4. PERFALGAN (ACETAMINOPHEN) [Concomitant]

REACTIONS (4)
  - BLADDER DISTENSION [None]
  - INFANTILE APNOEIC ATTACK [None]
  - OXYGEN SATURATION DECREASED [None]
  - URINARY RETENTION [None]
